FAERS Safety Report 21246240 (Version 4)
Quarter: 2022Q3

REPORT INFORMATION
  Report Type: Spontaneous
  Country: NO (occurrence: NO)
  Receive Date: 20220824
  Receipt Date: 20220928
  Transmission Date: 20221027
  Serious: Yes (Other)
  Sender: FDA-Public Use
  Company Number: NO-SANOFI-01190357

PATIENT
  Age: 76 Year
  Sex: Male

DRUGS (9)
  1. ENOXAPARIN [Suspect]
     Active Substance: ENOXAPARIN
     Indication: Deep vein thrombosis
     Dosage: 10000 IU/ SYRINGE X2
     Route: 058
     Dates: end: 20220416
  2. ENOXAPARIN [Suspect]
     Active Substance: ENOXAPARIN
     Dosage: 8,000 IU / SYRINGE X2
     Route: 058
     Dates: end: 20220626
  3. XARELTO [Concomitant]
     Active Substance: RIVAROXABAN
     Indication: Thrombosis prophylaxis
     Dosage: UNK
  4. FRAGMIN [Concomitant]
     Active Substance: DALTEPARIN SODIUM
  5. EXELON [Concomitant]
     Active Substance: RIVASTIGMINE TARTRATE
  6. EZETIMIBE [Concomitant]
     Active Substance: EZETIMIBE
  7. SIMBRINZA [Concomitant]
     Active Substance: BRIMONIDINE TARTRATE\BRINZOLAMIDE
  8. XALCOM [Concomitant]
     Active Substance: LATANOPROST\TIMOLOL
  9. VITAMIN B12 [Concomitant]
     Active Substance: CYANOCOBALAMIN

REACTIONS (7)
  - Urinary retention [Unknown]
  - Bladder hypertrophy [Unknown]
  - Injection site induration [Not Recovered/Not Resolved]
  - Bladder dysfunction [Not Recovered/Not Resolved]
  - Injection site mass [Recovering/Resolving]
  - Haematoma [Unknown]
  - Haematuria [Unknown]
